FAERS Safety Report 4575090-6 (Version None)
Quarter: 2005Q1

REPORT INFORMATION
  Report Type: 
  Country: None (occurrence: None)
  Receive Date: 20050208
  Receipt Date: 20050127
  Transmission Date: 20050727
  Serious: Yes (Hospitalization)
  Sender: FDA-Public Use
  Company Number: AT-GLAXOSMITHKLINE-B0369754A

PATIENT
  Age: 73 Year
  Sex: Male
  Weight: 92 kg

DRUGS (9)
  1. LAMOTRIGINE [Suspect]
     Indication: DEPRESSION
     Route: 048
     Dates: start: 20041013, end: 20041117
  2. EFFEXOR [Suspect]
     Indication: ILL-DEFINED DISORDER
     Route: 048
     Dates: start: 20041001, end: 20041031
  3. MIRTAZAPINE [Suspect]
     Indication: ILL-DEFINED DISORDER
     Dosage: 60MG PER DAY
     Route: 048
     Dates: start: 20041011
  4. QUETIAPINE FUMARATE [Suspect]
     Indication: ILL-DEFINED DISORDER
     Route: 048
     Dates: start: 20041018
  5. ALPRAZOLAM [Concomitant]
     Indication: ILL-DEFINED DISORDER
     Route: 048
     Dates: start: 20041015, end: 20041027
  6. TAMSULOSIN [Concomitant]
     Indication: ILL-DEFINED DISORDER
     Dosage: .4MG PER DAY
     Route: 048
  7. LACTULOSE [Concomitant]
     Indication: ILL-DEFINED DISORDER
     Route: 048
  8. SEROXAT [Concomitant]
     Indication: ILL-DEFINED DISORDER
     Dosage: 60MG PER DAY
     Route: 065
     Dates: end: 20041126
  9. NORTRIPTYLINE HCL [Concomitant]
     Indication: ILL-DEFINED DISORDER
     Dosage: 50MG PER DAY
     Route: 048
     Dates: start: 20041124, end: 20041207

REACTIONS (1)
  - ANURIA [None]
